FAERS Safety Report 11128361 (Version 2)
Quarter: 2015Q2

REPORT INFORMATION
  Report Type: Spontaneous
  Country: DE (occurrence: DE)
  Receive Date: 20150521
  Receipt Date: 20150626
  Transmission Date: 20150821
  Serious: Yes (Hospitalization)
  Sender: FDA-Public Use
  Company Number: DE-JNJFOC-20150508436

PATIENT
  Age: 82 Year
  Sex: Female
  Weight: 122 kg

DRUGS (14)
  1. IMBRUVICA [Suspect]
     Active Substance: IBRUTINIB
     Indication: CHRONIC LYMPHOCYTIC LEUKAEMIA
     Dosage: 140MG X3; DOSE: 3-0-0
     Route: 048
     Dates: start: 20150514
  2. DEKRISTOL [Concomitant]
     Active Substance: CHOLECALCIFEROL
  3. VITAMIN B12 [Concomitant]
     Active Substance: CYANOCOBALAMIN
  4. RAMIPRIL. [Concomitant]
     Active Substance: RAMIPRIL
  5. MONO EMBOLEX [Concomitant]
     Active Substance: CERTOPARIN SODIUM
  6. FOLSAN [Concomitant]
     Active Substance: FOLIC ACID
  7. HUMALOG MIX [Concomitant]
     Active Substance: INSULIN LISPRO
  8. IMBRUVICA [Suspect]
     Active Substance: IBRUTINIB
     Indication: CHRONIC LYMPHOCYTIC LEUKAEMIA
     Dosage: 140MG X3; DOSE: 3-0-0
     Route: 048
     Dates: start: 20141118, end: 20150511
  9. ISOKET [Concomitant]
     Active Substance: ISOSORBIDE DINITRATE
  10. THIAMAZOL [Concomitant]
     Active Substance: METHIMAZOLE
  11. FALITHROM [Interacting]
     Active Substance: PHENPROCOUMON
     Indication: MITRAL VALVE INCOMPETENCE
     Route: 048
     Dates: start: 201501, end: 201505
  12. FALITHROM [Interacting]
     Active Substance: PHENPROCOUMON
     Indication: MITRAL VALVE INCOMPETENCE
     Route: 048
     Dates: start: 2003
  13. TORASEMID [Concomitant]
     Active Substance: TORSEMIDE
  14. METOHEXAL SUCC [Concomitant]
     Active Substance: METOPROLOL SUCCINATE

REACTIONS (2)
  - Epistaxis [Recovered/Resolved]
  - Drug interaction [Recovered/Resolved]

NARRATIVE: CASE EVENT DATE: 20150507
